FAERS Safety Report 15446494 (Version 1)
Quarter: 2018Q3

REPORT INFORMATION
  Report Type: Spontaneous
  Country: US (occurrence: US)
  Receive Date: 20180925
  Receipt Date: 20180925
  Transmission Date: 20181010
  Serious: Yes (Life-Threatening, Hospitalization, Disabling, Congenital Anomaly, Other)
  Sender: FDA-Public Use
  Company Number: None

PATIENT
  Age: 54 Year
  Sex: Male
  Weight: 90.72 kg

DRUGS (6)
  1. CALCIUM GLUCONATE. [Suspect]
     Active Substance: CALCIUM GLUCONATE
     Indication: SPINAL DISORDER
     Dates: start: 20130708, end: 20130711
  2. BATTERY BONE STIMULATOR WIRES [Suspect]
     Active Substance: DEVICE
  3. GABAPENTIN. [Concomitant]
     Active Substance: GABAPENTIN
  4. METROLOL [Concomitant]
     Active Substance: METOPROLOL
  5. TYLENOL/COD [Concomitant]
  6. TAMSULOSIN [Concomitant]
     Active Substance: TAMSULOSIN

REACTIONS (3)
  - Malaise [None]
  - Product contamination [None]
  - Surgery [None]

NARRATIVE: CASE EVENT DATE: 20130708
